FAERS Safety Report 7369610-6 (Version None)
Quarter: 2011Q1

REPORT INFORMATION
  Report Type: 
  Country: None (occurrence: None)
  Receive Date: 20110323
  Receipt Date: 20110316
  Transmission Date: 20110831
  Serious: Yes (Life-Threatening)
  Sender: FDA-Public Use
  Company Number: GB-MERCK-1103GBR00082

PATIENT
  Age: 52 Year
  Sex: Male

DRUGS (6)
  1. ZOCOR [Suspect]
     Indication: DYSLIPIDAEMIA
     Route: 048
     Dates: start: 20110224, end: 20110224
  2. BECLOMETHASONE DIPROPIONATE [Concomitant]
     Route: 055
     Dates: start: 20090101
  3. ACETAMINOPHEN [Concomitant]
     Route: 048
     Dates: start: 20100101
  4. PROSCAR [Concomitant]
     Route: 048
     Dates: start: 20101101
  5. NAPROXEN [Concomitant]
     Route: 048
     Dates: start: 20101201
  6. ALBUTEROL [Concomitant]
     Route: 055
     Dates: start: 20050101

REACTIONS (1)
  - THROAT TIGHTNESS [None]
